FAERS Safety Report 4490530-9 (Version None)
Quarter: 2004Q4

REPORT INFORMATION
  Report Type: 
  Country: None (occurrence: None)
  Receive Date: 20041029
  Receipt Date: 20041018
  Transmission Date: 20050328
  Serious: Yes (Hospitalization)
  Sender: FDA-Public Use
  Company Number: 2004SE05136

PATIENT
  Age: 73 Year
  Sex: Female
  Weight: 46 kg

DRUGS (7)
  1. ROSUVASTATIN [Suspect]
     Indication: CARDIAC FAILURE CONGESTIVE
     Dosage: 10 MG DAILY PO
     Route: 048
     Dates: start: 20040520, end: 20040913
  2. CAPTOPRIL [Concomitant]
  3. FUROSEMIDE [Concomitant]
  4. IDROCLOROTIAZIDE [Concomitant]
  5. ALLOPURINOLO [Concomitant]
  6. CANRENONE [Concomitant]
  7. DIGITALIS [Concomitant]

REACTIONS (13)
  - ANAEMIA [None]
  - ARRHYTHMIA SUPRAVENTRICULAR [None]
  - ASTHENIA [None]
  - CARDIAC FAILURE [None]
  - CONDITION AGGRAVATED [None]
  - DERMATITIS [None]
  - DUODENAL ULCER [None]
  - EXANTHEM [None]
  - EXTRASYSTOLES [None]
  - HYPERKALAEMIA [None]
  - MELAENA [None]
  - PRURITUS [None]
  - RENAL FAILURE [None]
